FAERS Safety Report 13245766 (Version 1)
Quarter: 2017Q1

REPORT INFORMATION
  Report Type: Report from Study
  Country: US (occurrence: US)
  Receive Date: 20170217
  Receipt Date: 20170217
  Transmission Date: 20170428
  Serious: Yes (Hospitalization, Other)
  Sender: FDA-Public Use
  Company Number: US-ROCHE-1892835

PATIENT
  Sex: Male
  Weight: 78.54 kg

DRUGS (2)
  1. RITUXAN [Suspect]
     Active Substance: RITUXIMAB
     Indication: STILL^S DISEASE ADULT ONSET
     Dosage: ONGOING: NO
     Route: 042
  2. ACTEMRA [Suspect]
     Active Substance: TOCILIZUMAB
     Indication: STILL^S DISEASE ADULT ONSET
     Dosage: ONGOING:YES
     Route: 058

REACTIONS (5)
  - Immunodeficiency [Unknown]
  - Off label use [Unknown]
  - General physical health deterioration [Unknown]
  - Pneumonia [Unknown]
  - Loss of consciousness [Recovered/Resolved]
